FAERS Safety Report 14777698 (Version 4)
Quarter: 2018Q2

REPORT INFORMATION
  Report Type: Report from Study
  Country: CA (occurrence: CA)
  Receive Date: 20180419
  Receipt Date: 20180515
  Transmission Date: 20180711
  Serious: Yes (Other)
  Sender: FDA-Public Use
  Company Number: CA-ROCHE-2107830

PATIENT
  Age: 20 Year
  Sex: Female

DRUGS (7)
  1. VITAMIN B12 [Concomitant]
     Active Substance: CYANOCOBALAMIN
  2. DILAUDID [Concomitant]
     Active Substance: HYDROMORPHONE HYDROCHLORIDE
  3. RITUXAN [Suspect]
     Active Substance: RITUXIMAB
     Indication: DERMATOMYOSITIS
     Dosage: ON HOLD
     Route: 042
     Dates: start: 20180404
  4. TYLENOL [Concomitant]
     Active Substance: ACETAMINOPHEN
  5. PLAQUENIL [Concomitant]
     Active Substance: HYDROXYCHLOROQUINE SULFATE
  6. PREGABALIN. [Concomitant]
     Active Substance: PREGABALIN
  7. PREDNISONE. [Concomitant]
     Active Substance: PREDNISONE

REACTIONS (7)
  - Seizure [Unknown]
  - Feeling cold [Unknown]
  - Body temperature increased [Recovered/Resolved]
  - Chills [Recovered/Resolved]
  - Pericarditis [Not Recovered/Not Resolved]
  - Anxiety [Unknown]
  - Skin discolouration [Recovered/Resolved]

NARRATIVE: CASE EVENT DATE: 20180406
